FAERS Safety Report 9652951 (Version 2)
Quarter: 2013Q4

REPORT INFORMATION
  Report Type: Report from Study
  Country: BE (occurrence: BE)
  Receive Date: 20131029
  Receipt Date: 20131113
  Transmission Date: 20140711
  Serious: Yes (Hospitalization)
  Sender: FDA-Public Use
  Company Number: BE-UCBSA-101484

PATIENT
  Age: 74 Year
  Sex: Male
  Weight: 77 kg

DRUGS (6)
  1. CERTOLIZUMAB PEGOL [Suspect]
     Indication: RHEUMATOID ARTHRITIS
     Dosage: FIRST 3 DOSES WERE 400MG EVERY 2 WEEKS FOR LOADING DOSES
     Route: 058
     Dates: start: 20121106, end: 20131024
  2. AMOXYCLAV [Concomitant]
     Indication: ERYSIPELAS
     Route: 048
     Dates: start: 20131019, end: 20131020
  3. AMOXYCLAV [Concomitant]
     Indication: ERYSIPELAS
     Route: 048
     Dates: start: 20131022, end: 20131029
  4. METHOTREXATE [Concomitant]
     Indication: RHEUMATOID ARTHRITIS
     Route: 048
     Dates: start: 20121204
  5. FOLIC ACID [Concomitant]
     Indication: RHEUMATOID ARTHRITIS
     Route: 048
     Dates: start: 20121107
  6. AMOXICILLINE [Concomitant]
     Indication: ERYSIPELAS
     Route: 048
     Dates: start: 20131018, end: 20131019

REACTIONS (1)
  - Erysipelas [Recovered/Resolved]
